FAERS Safety Report 16736175 (Version 1)
Quarter: 2019Q3

REPORT INFORMATION
  Report Type: Spontaneous
  Country: US (occurrence: US)
  Receive Date: 20190823
  Receipt Date: 20190823
  Transmission Date: 20191005
  Serious: No
  Sender: FDA-Public Use
  Company Number: US-SA-2019SA224172

PATIENT
  Age: 74 Year
  Sex: Female

DRUGS (1)
  1. AMBIEN [Suspect]
     Active Substance: ZOLPIDEM TARTRATE
     Indication: INSOMNIA
     Dosage: 10 MG, QD, 1/2 TAB AT BEDTIME AND 1/2 TAB 3-4 HOURS AFTER SHE FALLS ASLEEP
     Route: 048

REACTIONS (4)
  - Confusional state [Unknown]
  - Tongue disorder [Unknown]
  - Somnolence [Unknown]
  - Dry mouth [Unknown]
